FAERS Safety Report 18221188 (Version 1)
Quarter: 2020Q3

REPORT INFORMATION
  Report Type: Spontaneous
  Country: US (occurrence: US)
  Receive Date: 20200901
  Receipt Date: 20200901
  Transmission Date: 20201103
  Serious: Yes (Other)
  Sender: FDA-Public Use
  Company Number: None

PATIENT
  Age: 67 Year
  Sex: Female
  Weight: 76.5 kg

DRUGS (1)
  1. BELRAPZO [Suspect]
     Active Substance: BENDAMUSTINE HYDROCHLORIDE
     Indication: B-CELL LYMPHOMA
     Route: 042
     Dates: start: 20200820, end: 20200821

REACTIONS (10)
  - Eructation [None]
  - Pain in extremity [None]
  - Dysphagia [None]
  - Paraesthesia [None]
  - Abdominal distension [None]
  - Dizziness [None]
  - Dyspepsia [None]
  - Tremor [None]
  - Visual impairment [None]
  - Product substitution issue [None]
